FAERS Safety Report 18109529 (Version 1)
Quarter: 2020Q3

REPORT INFORMATION
  Report Type: Report from Study
  Country: US (occurrence: US)
  Receive Date: 20200804
  Receipt Date: 20200804
  Transmission Date: 20201103
  Serious: Yes (Other)
  Sender: FDA-Public Use
  Company Number: US-ASTRAZENECA-2020SE93221

PATIENT
  Age: 66 Year

DRUGS (3)
  1. PEMETREXED. [Interacting]
     Active Substance: PEMETREXED
     Indication: NON-SMALL CELL LUNG CANCER STAGE IIIA
     Route: 065
  2. CISPLATIN. [Interacting]
     Active Substance: CISPLATIN
     Indication: NON-SMALL CELL LUNG CANCER STAGE IIIA
     Route: 065
  3. DURVALUMAB. [Suspect]
     Active Substance: DURVALUMAB
     Indication: NON-SMALL CELL LUNG CANCER STAGE IIIA
     Dosage: 10 MG/KG EVERY TWO WEEKS
     Route: 042

REACTIONS (2)
  - Radiation interaction [Recovered/Resolved]
  - Radiation pneumonitis [Recovering/Resolving]
